FAERS Safety Report 8928774 (Version 1)
Quarter: 2012Q4

REPORT INFORMATION
  Report Type: Spontaneous
  Country: US (occurrence: None)
  Receive Date: 20121126
  Receipt Date: 20121126
  Transmission Date: 20130627
  Serious: Yes (Other)
  Sender: FDA-Public Use
  Company Number: None

PATIENT
  Age: 74 Year
  Sex: Male
  Weight: 104.33 kg

DRUGS (2)
  1. PRISTIQ [Suspect]
     Indication: CHRONIC DEPRESSION
     Route: 048
     Dates: start: 20120815, end: 20121101
  2. PRISTIQ [Suspect]
     Indication: ANXIETY
     Route: 048
     Dates: start: 20120815, end: 20121101

REACTIONS (1)
  - Headache [None]
